FAERS Safety Report 11472297 (Version 1)
Quarter: 2015Q3

REPORT INFORMATION
  Report Type: Spontaneous
  Country: US (occurrence: US)
  Receive Date: 20150908
  Receipt Date: 20150908
  Transmission Date: 20151125
  Serious: No
  Sender: FDA-Public Use
  Company Number: US-SA-2015SA096431

PATIENT
  Age: 71 Year
  Sex: Female

DRUGS (4)
  1. CORTISONE [Concomitant]
     Active Substance: CORTISONE\HYDROCORTISONE
  2. INSULIN [Concomitant]
     Active Substance: INSULIN NOS
  3. TOUJEO [Suspect]
     Active Substance: INSULIN GLARGINE
     Indication: DIABETES MELLITUS
     Dosage: DOSE: VARIES, START 14 U
     Route: 065
     Dates: start: 201505
  4. SOLOSTAR [Concomitant]
     Active Substance: DEVICE
     Dates: start: 201505

REACTIONS (5)
  - Injection site discolouration [Unknown]
  - Incorrect product storage [Unknown]
  - Joint swelling [Unknown]
  - Hyperaesthesia [Unknown]
  - Glycosylated haemoglobin decreased [Unknown]
